FAERS Safety Report 9290219 (Version 1)
Quarter: 2013Q2

REPORT INFORMATION
  Report Type: Spontaneous
  Country: MX (occurrence: MX)
  Receive Date: 20130515
  Receipt Date: 20130515
  Transmission Date: 20140414
  Serious: Yes (Death, Hospitalization, Other)
  Sender: FDA-Public Use
  Company Number: MX-BRISTOL-MYERS SQUIBB COMPANY-18885640

PATIENT
  Age: 100 Year
  Sex: Female

DRUGS (1)
  1. APROVEL TABS 150 MG [Suspect]
     Indication: HYPERTENSION
     Dosage: 1DF:1TAB
     Route: 048
     Dates: start: 2007, end: 20130108

REACTIONS (4)
  - Respiratory arrest [Fatal]
  - Fall [Unknown]
  - Hypertension [Unknown]
  - Hip fracture [Unknown]
